FAERS Safety Report 22155499 (Version 1)
Quarter: 2023Q1

REPORT INFORMATION
  Report Type: Spontaneous
  Country: US (occurrence: US)
  Receive Date: 20230330
  Receipt Date: 20230330
  Transmission Date: 20230418
  Serious: No
  Sender: FDA-Public Use
  Company Number: US-drreddys-SPO/USA/23/0161670

PATIENT
  Age: 71 Year

DRUGS (1)
  1. ZENATANE [Suspect]
     Active Substance: ISOTRETINOIN
     Indication: Product used for unknown indication
     Dosage: RMA ISSUE DATE :14 NOVEMBER 2022 04:28:48 PM AND 15 DECEMBER 2022 11:04:17 AM

REACTIONS (1)
  - Drug intolerance [Unknown]
